FAERS Safety Report 4657021-3 (Version None)
Quarter: 2005Q2

REPORT INFORMATION
  Report Type: 
  Country: None (occurrence: None)
  Receive Date: 20050509
  Receipt Date: 20050502
  Transmission Date: 20051028
  Serious: Yes (Life-Threatening, Hospitalization)
  Sender: FDA-Public Use
  Company Number: GXKR2005DE00970

PATIENT
  Age: 15 Year
  Sex: Female

DRUGS (1)
  1. METFORMIN (NGX) (METFORMIN) [Suspect]
     Indication: MEDICATION ERROR
     Dosage: 38.25 G (0.55 G/KG), ORAL
     Route: 048

REACTIONS (9)
  - BLOOD GLUCOSE DECREASED [None]
  - GLASGOW COMA SCALE ABNORMAL [None]
  - HAEMODIALYSIS [None]
  - INTENTIONAL MISUSE [None]
  - LACTIC ACIDOSIS [None]
  - OVERDOSE [None]
  - RENAL FAILURE ACUTE [None]
  - SOMNOLENCE [None]
  - VOMITING [None]
